FAERS Safety Report 14950015 (Version 2)
Quarter: 2018Q2

REPORT INFORMATION
  Report Type: Spontaneous
  Country: JP (occurrence: JP)
  Receive Date: 20180530
  Receipt Date: 20180614
  Transmission Date: 20180711
  Serious: Yes (Hospitalization, Other)
  Sender: FDA-Public Use
  Company Number: JP-CONCORDIA PHARMACEUTICALS INC.-E2B_00011576

PATIENT
  Age: 35 Year
  Sex: Male

DRUGS (8)
  1. ALEVIATIN [Suspect]
     Active Substance: PHENYTOIN SODIUM
     Route: 048
     Dates: start: 20180503, end: 20180513
  2. VALPROATE SODIUM. [Suspect]
     Active Substance: VALPROATE SODIUM
     Indication: PRODUCT USED FOR UNKNOWN INDICATION
     Dosage: UNKNOWN
     Route: 048
     Dates: start: 201803, end: 20180420
  3. ZONISAMIDE. [Suspect]
     Active Substance: ZONISAMIDE
     Indication: EPILEPSY
     Dosage: UNKNOWN
     Route: 048
     Dates: start: 201803, end: 20180420
  4. ALEVIATIN [Suspect]
     Active Substance: PHENYTOIN SODIUM
     Route: 048
     Dates: start: 20180514
  5. ALEVIATIN [Suspect]
     Active Substance: PHENYTOIN SODIUM
     Indication: PRODUCT USED FOR UNKNOWN INDICATION
     Dosage: UNKNOWN
     Route: 048
     Dates: start: 201803, end: 20180420
  6. ALEVIATIN [Suspect]
     Active Substance: PHENYTOIN SODIUM
     Route: 048
     Dates: start: 20180501, end: 20180502
  7. ZONISAMIDE. [Suspect]
     Active Substance: ZONISAMIDE
     Route: 048
     Dates: start: 20180501
  8. ALEVIATIN [Suspect]
     Active Substance: PHENYTOIN SODIUM
     Route: 048
     Dates: start: 20180426, end: 20180430

REACTIONS (2)
  - Drug withdrawal convulsions [Recovered/Resolved]
  - Hepatic function abnormal [Recovering/Resolving]

NARRATIVE: CASE EVENT DATE: 20180420
